FAERS Safety Report 5631955-5 (Version None)
Quarter: 2008Q1

REPORT INFORMATION
  Report Type: 
  Country: None (occurrence: None)
  Receive Date: 20080220
  Receipt Date: 20080211
  Transmission Date: 20080703
  Serious: Yes (Disabling)
  Sender: FDA-Public Use
  Company Number: BR-ELI_LILLY_AND_COMPANY-BR200802002362

PATIENT
  Sex: Female

DRUGS (13)
  1. FORTEO [Suspect]
     Indication: OSTEOPOROSIS
     Dosage: 20 UG, DAILY (1/D)
     Route: 058
     Dates: start: 20070601
  2. EXELON [Concomitant]
     Indication: DEMENTIA ALZHEIMER'S TYPE
     Dosage: 6 MG, UNKNOWN
     Route: 065
  3. GLIMEPIRIDE [Concomitant]
     Indication: DIABETES MELLITUS
     Dosage: 6 MG, UNKNOWN
     Route: 065
  4. METFORMIN HCL [Concomitant]
     Indication: DIABETES MELLITUS
     Dosage: 500 MG, UNKNOWN
     Route: 065
  5. MOTILIUM [Concomitant]
     Indication: NAUSEA
     Dosage: UNK, UNKNOWN
     Route: 065
  6. DIOVAN HCT [Concomitant]
     Indication: HYPERTENSION
     Dosage: UNK, UNKNOWN
     Route: 065
  7. CALCIUM CARBONATE [Concomitant]
     Indication: OSTEOPOROSIS
     Dosage: UNK, UNKNOWN
     Route: 065
  8. SOMALGIN [Concomitant]
     Indication: PROPHYLAXIS
     Dosage: UNK, UNKNOWN
     Route: 065
  9. VYTORIN [Concomitant]
     Indication: HYPERCHOLESTEROLAEMIA
     Dosage: UNK, UNKNOWN
     Route: 065
  10. AMLODIPINE BESYLATE [Concomitant]
     Indication: HYPERTENSION
     Dosage: UNK, UNKNOWN
     Route: 065
  11. FRONTAL [Concomitant]
     Indication: AGITATION
     Dosage: 25 MG, UNKNOWN
     Route: 065
  12. SEROQUEL [Concomitant]
     Indication: AGITATION
     Dosage: 25 MG, UNKNOWN
     Route: 065
  13. SERTRALINE [Concomitant]
     Indication: AGITATION
     Dosage: 50 MG, UNKNOWN
     Route: 065

REACTIONS (1)
  - ABASIA [None]
